FAERS Safety Report 5634865-2 (Version None)
Quarter: 2008Q1

REPORT INFORMATION
  Report Type: 
  Country: None (occurrence: None)
  Receive Date: 20080222
  Receipt Date: 20080215
  Transmission Date: 20080703
  Serious: No
  Sender: FDA-Public Use
  Company Number: US-BAXTER-2008BH001465

PATIENT
  Age: 47 Year
  Sex: Male
  Weight: 123 kg

DRUGS (9)
  1. HEPARIN SODIUM [Suspect]
     Indication: PROPHYLAXIS
     Route: 033
     Dates: start: 20071228, end: 20080101
  2. VENOFER [Concomitant]
     Indication: MEDICAL DIET
     Dosage: DOSE UNIT:UNKNOWN
     Route: 042
     Dates: start: 20071201
  3. EPOGEN [Concomitant]
     Indication: ANAEMIA
     Dosage: DOSE UNIT:UNKNOWN
     Route: 058
     Dates: start: 20071201
  4. ATENOLOL [Concomitant]
     Indication: HYPERTENSION
     Dosage: DOSE UNIT:UNKNOWN
     Route: 048
  5. CRESTOR [Concomitant]
     Indication: HYPERCHOLESTEROLAEMIA
     Dosage: DOSE UNIT:UNKNOWN
     Route: 048
  6. GLUCOTROL [Concomitant]
     Indication: DIABETES MELLITUS
     Dosage: DOSE UNIT:UNKNOWN
     Route: 048
  7. NORVASC [Concomitant]
     Indication: HYPERTENSION
     Dosage: DOSE UNIT:UNKNOWN
     Route: 048
  8. RENAGEL [Concomitant]
     Indication: BLOOD PHOSPHORUS INCREASED
     Dosage: DOSE UNIT:UNKNOWN
     Route: 048
     Dates: start: 20071201
  9. ZOLOFT [Concomitant]
     Indication: DEPRESSION
     Dosage: DOSE UNIT:UNKNOWN
     Route: 048

REACTIONS (1)
  - HYPERSENSITIVITY [None]
